FAERS Safety Report 8989032 (Version 1)
Quarter: 2012Q4

REPORT INFORMATION
  Report Type: Spontaneous
  Country: US (occurrence: None)
  Receive Date: 20121224
  Receipt Date: 20121224
  Transmission Date: 20130627
  Serious: Yes (Other)
  Sender: FDA-Public Use
  Company Number: None

PATIENT
  Age: 63 Year
  Weight: 86.18 kg

DRUGS (1)
  1. CYMBALTA [Suspect]
     Indication: DEPRESSION
     Dosage: 30mg  twice daily
     Dates: start: 20071115, end: 20121220

REACTIONS (6)
  - Depression [None]
  - Constipation [None]
  - Anxiety [None]
  - Myalgia [None]
  - Muscle spasms [None]
  - Drug withdrawal syndrome [None]
